FAERS Safety Report 20651971 (Version 2)
Quarter: 2022Q2

REPORT INFORMATION
  Report Type: Spontaneous
  Country: JP (occurrence: JP)
  Receive Date: 20220330
  Receipt Date: 20220404
  Transmission Date: 20220721
  Serious: Yes (Death, Hospitalization, Other)
  Sender: FDA-Public Use
  Company Number: JP-ONO-2022JP008219

PATIENT
  Age: 72 Year
  Sex: Male

DRUGS (1)
  1. KYPROLIS [Suspect]
     Active Substance: CARFILZOMIB
     Indication: Plasma cell myeloma
     Dosage: UNK
     Route: 041
     Dates: start: 20210603, end: 20211224

REACTIONS (2)
  - Guillain-Barre syndrome [Fatal]
  - Disorientation [Unknown]

NARRATIVE: CASE EVENT DATE: 20211224
